FAERS Safety Report 5807476-3 (Version None)
Quarter: 2008Q3

REPORT INFORMATION
  Report Type: 
  Country: None (occurrence: None)
  Receive Date: 20080711
  Receipt Date: 20020620
  Transmission Date: 20090109
  Serious: Yes (Death, Other)
  Sender: FDA-Public Use
  Company Number: US-BAXTER-2007BH010033

PATIENT
  Sex: Female

DRUGS (1)
  1. ANTICOAGULANT CITRATE DEXTROSE [Suspect]
     Indication: ANTICOAGULANT THERAPY
     Dosage: DOSE UNIT:UNKNOWN
     Route: 065
     Dates: start: 20020524, end: 20020524

REACTIONS (2)
  - DEATH [None]
  - TRANSFUSION REACTION [None]
